FAERS Safety Report 6667316-X (Version None)
Quarter: 2010Q2

REPORT INFORMATION
  Report Type: 
  Country: None (occurrence: None)
  Receive Date: 20100405
  Receipt Date: 20100331
  Transmission Date: 20101027
  Serious: Yes (Hospitalization)
  Sender: FDA-Public Use
  Company Number: AU-B.I. PHARMACEUTICALS,INC./RIDGEFIELD-2010-AU-00256AU

PATIENT
  Age: 65 Year
  Sex: Female

DRUGS (1)
  1. MOBIC [Suspect]

REACTIONS (1)
  - MARROW HYPERPLASIA [None]
